FAERS Safety Report 19359886 (Version 2)
Quarter: 2021Q3

REPORT INFORMATION
  Report Type: Spontaneous
  Country: US (occurrence: US)
  Receive Date: 20210601
  Receipt Date: 20210825
  Transmission Date: 20211014
  Serious: Yes (Other)
  Sender: FDA-Public Use
  Company Number: US-BAYER-2021-145919

PATIENT
  Sex: Female

DRUGS (4)
  1. TRAMADOL. [Concomitant]
     Active Substance: TRAMADOL
     Indication: HEADACHE
     Dosage: 50 MG, 5ID
  2. ASPIRIN (PAIN AND FEVER) [Suspect]
     Active Substance: ASPIRIN
  3. COVID?19 VACCINE [Concomitant]
     Dosage: UNK
     Dates: start: 20210324, end: 20210415
  4. OXYCODONE [Concomitant]
     Active Substance: OXYCODONE
     Dosage: 5 MG, 4IW

REACTIONS (4)
  - Drug hypersensitivity [None]
  - Aspirin-exacerbated respiratory disease [None]
  - Abortion spontaneous [None]
  - Anaphylactic reaction [Unknown]

NARRATIVE: CASE EVENT DATE: 1979
